FAERS Safety Report 9207033 (Version 1)
Quarter: 2013Q2

REPORT INFORMATION
  Report Type: Spontaneous
  Country: US (occurrence: US)
  Receive Date: 20130402
  Receipt Date: 20130402
  Transmission Date: 20140414
  Serious: Yes (Other)
  Sender: FDA-Public Use
  Company Number: US-RB-045391-12

PATIENT
  Age: 43 Year
  Sex: Female

DRUGS (4)
  1. SUBOXONE FILM [Suspect]
     Indication: PRODUCT USED FOR UNKNOWN INDICATION
     Dosage: SUBOXONE FILM; VARIOUS DOSES, STOPPED AROUND SEP-OCT-2012
     Route: 060
     Dates: start: 201111, end: 2012
  2. SUBOXONE FILM [Suspect]
     Dosage: SUBOXONE FILM
     Route: 060
     Dates: start: 201210
  3. SUBOXONE TABLET [Suspect]
     Indication: PRODUCT USED FOR UNKNOWN INDICATION
     Dosage: STARTED AROUND SEP-OCT-2012; CUTTING IN HALF
     Route: 060
     Dates: start: 2012, end: 2012
  4. SUBOXONE TABLET [Suspect]
     Dosage: CUTTING IN 4 PIECES FOR 4 DAYS
     Route: 060
     Dates: start: 2012, end: 201210

REACTIONS (14)
  - Off label use [Recovered/Resolved]
  - Wrong technique in drug usage process [Recovered/Resolved]
  - Underdose [Recovered/Resolved]
  - Drug withdrawal syndrome [Recovered/Resolved]
  - Nausea [Recovered/Resolved]
  - Diarrhoea [Recovered/Resolved]
  - Headache [Recovered/Resolved]
  - Decreased appetite [Recovered/Resolved]
  - Tremor [Recovered/Resolved]
  - Muscle spasms [Recovered/Resolved]
  - Paraesthesia [Recovered/Resolved]
  - Drug dependence [Recovered/Resolved]
  - Photophobia [Recovered/Resolved]
  - Hepatitis C [Not Recovered/Not Resolved]
